FAERS Safety Report 14385036 (Version 1)
Quarter: 2018Q1

REPORT INFORMATION
  Report Type: Spontaneous
  Country: US (occurrence: US)
  Receive Date: 20180115
  Receipt Date: 20180115
  Transmission Date: 20180509
  Serious: Yes (Hospitalization, Other)
  Sender: FDA-Public Use
  Company Number: US-ACCORD-062718

PATIENT
  Age: 45 Year
  Sex: Female

DRUGS (10)
  1. METHOTREXATE. [Suspect]
     Active Substance: METHOTREXATE
     Indication: CHONDROSARCOMA
  2. DOXORUBICIN [Suspect]
     Active Substance: DOXORUBICIN
     Indication: CHONDROSARCOMA
  3. FOSAPREPITANT DIMEGLUMINE. [Concomitant]
     Active Substance: FOSAPREPITANT DIMEGLUMINE
     Indication: PROPHYLAXIS
     Dosage: ON DAY 1
     Route: 042
  4. DEXAMETHASONE. [Concomitant]
     Active Substance: DEXAMETHASONE
     Indication: PROPHYLAXIS
     Dosage: ON DAY 1 FOLLOWED BY 8 MG ON DAYS 2 AND 3
     Route: 042
  5. PALONOSETRON/PALONOSETRON HYDROCHLORIDE [Concomitant]
     Indication: PROPHYLAXIS
     Dosage: ON DAYS 1 AND 3
     Route: 042
  6. OLANZAPINE. [Concomitant]
     Active Substance: OLANZAPINE
     Indication: PROPHYLAXIS
     Dosage: IN THE MORNING
  7. CISPLATIN. [Suspect]
     Active Substance: CISPLATIN
     Indication: CHONDROSARCOMA
  8. OLANZAPINE. [Concomitant]
     Active Substance: OLANZAPINE
     Indication: PROPHYLAXIS
     Dosage: IN THE EVENING AND 5 MG IN THE MORNING ??5 MG IN THE MORNING
  9. DEXAMETHASONE. [Concomitant]
     Active Substance: DEXAMETHASONE
     Indication: PROPHYLAXIS
     Dosage: ON DAYS 2 AND 3
  10. LORAZEPAM. [Concomitant]
     Active Substance: LORAZEPAM
     Indication: PROPHYLAXIS OF NAUSEA AND VOMITING
     Route: 042

REACTIONS (5)
  - Alopecia [Unknown]
  - Emotional distress [Recovering/Resolving]
  - Vomiting [Recovering/Resolving]
  - Nausea [Recovering/Resolving]
  - Off label use [Unknown]
